FAERS Safety Report 8349487-2 (Version None)
Quarter: 2012Q2

REPORT INFORMATION
  Report Type: 
  Country: None (occurrence: None)
  Receive Date: 20120508
  Receipt Date: 20120508
  Transmission Date: 20120825
  Serious: No
  Sender: FDA-Public Use
  Company Number: None

PATIENT
  Age: 63 Year
  Sex: Male
  Weight: 126.8 kg

DRUGS (1)
  1. METHOTREXATE [Suspect]
     Indication: SERONEGATIVE ARTHRITIS
     Dosage: 8 TAB Q WEEK PO
     Route: 048
     Dates: start: 20090204, end: 20110822

REACTIONS (4)
  - BLOOD TESTOSTERONE FREE DECREASED [None]
  - GYNAECOMASTIA [None]
  - DISCOMFORT [None]
  - BLOOD TESTOSTERONE DECREASED [None]
